FAERS Safety Report 19279624 (Version 1)
Quarter: 2021Q2

REPORT INFORMATION
  Report Type: Spontaneous
  Country: GB (occurrence: GB)
  Receive Date: 20210520
  Receipt Date: 20210520
  Transmission Date: 20210717
  Serious: Yes (Other)
  Sender: FDA-Public Use
  Company Number: GB-TORRENT-00025699

PATIENT
  Age: 45 Year
  Sex: Female
  Weight: 79 kg

DRUGS (3)
  1. OLANZAPINE. [Suspect]
     Active Substance: OLANZAPINE
     Indication: PSYCHOTIC DISORDER
     Dosage: 5 MG DAILY
     Route: 048
     Dates: start: 2011
  2. ACCORD?UK ZOPICLONE [Suspect]
     Active Substance: ZOPICLONE
     Indication: INSOMNIA
     Dosage: 7.5MG PRN/ 7X TABLETS PER MONTH
     Route: 048
     Dates: start: 2011
  3. LITHIUM CARBONATE. [Suspect]
     Active Substance: LITHIUM CARBONATE
     Indication: MOOD SWINGS
     Dosage: 800 MG DAILY
     Route: 048
     Dates: start: 2008

REACTIONS (1)
  - Cataract [Unknown]

NARRATIVE: CASE EVENT DATE: 2021
